FAERS Safety Report 22228865 (Version 1)
Quarter: 2023Q2

REPORT INFORMATION
  Report Type: Spontaneous
  Country: US (occurrence: None)
  Receive Date: 20230418
  Receipt Date: 20230418
  Transmission Date: 20230722
  Serious: Yes (Hospitalization)
  Sender: FDA-Public Use
  Company Number: None

PATIENT
  Age: 26 Year
  Sex: Male

DRUGS (2)
  1. ADCIRCA [Suspect]
     Active Substance: TADALAFIL
     Indication: Pulmonary arterial hypertension
     Dosage: 40MG DAILY ORAL
     Route: 048
     Dates: start: 202103
  2. LETAIRIS [Suspect]
     Active Substance: AMBRISENTAN

REACTIONS (4)
  - Dizziness [None]
  - Dyspnoea [None]
  - Tachycardia [None]
  - Therapy interrupted [None]

NARRATIVE: CASE EVENT DATE: 20230417
